FAERS Safety Report 4319745-7 (Version None)
Quarter: 2004Q1

REPORT INFORMATION
  Report Type: 
  Country: None (occurrence: None)
  Receive Date: 20040319
  Receipt Date: 20040312
  Transmission Date: 20041129
  Serious: Yes (Hospitalization)
  Sender: FDA-Public Use
  Company Number: US-GLAXOSMITHKLINE-A0502595A

PATIENT
  Age: 83 Year
  Sex: Male

DRUGS (3)
  1. AVODART [Suspect]
     Indication: BENIGN PROSTATIC HYPERPLASIA
     Dosage: .5MG PER DAY
     Route: 048
     Dates: end: 20040304
  2. CARDURA [Concomitant]
  3. INDOCIN [Concomitant]

REACTIONS (4)
  - ATRIAL FLUTTER [None]
  - DRUG INEFFECTIVE [None]
  - DYSURIA [None]
  - HEART RATE INCREASED [None]
